FAERS Safety Report 11201532 (Version 1)
Quarter: 2015Q2

REPORT INFORMATION
  Report Type: Spontaneous
  Country: CN (occurrence: CN)
  Receive Date: 20150619
  Receipt Date: 20150619
  Transmission Date: 20150821
  Serious: Yes (Other)
  Sender: FDA-Public Use
  Company Number: CN-BAYER-2015-323647

PATIENT
  Age: 84 Year
  Sex: Male

DRUGS (1)
  1. AVELOX [Suspect]
     Active Substance: MOXIFLOXACIN HYDROCHLORIDE
     Indication: ANTIBIOTIC THERAPY
     Dosage: 0.4 G, QD
     Route: 041
     Dates: start: 20131217, end: 20131218

REACTIONS (4)
  - Delirium [Recovered/Resolved]
  - Hallucination, visual [Recovered/Resolved]
  - Restlessness [Recovered/Resolved]
  - Hallucination [Recovered/Resolved]

NARRATIVE: CASE EVENT DATE: 20131218
